FAERS Safety Report 5733836-5 (Version None)
Quarter: 2008Q2

REPORT INFORMATION
  Report Type: 
  Country: None (occurrence: None)
  Receive Date: 20080509
  Receipt Date: 20080501
  Transmission Date: 20081010
  Serious: Yes (Hospitalization)
  Sender: FDA-Public Use
  Company Number: US-GILEAD-2008-0016311

PATIENT
  Sex: Female
  Weight: 66.738 kg

DRUGS (10)
  1. LETAIRIS [Suspect]
     Indication: PULMONARY ARTERIAL HYPERTENSION
     Route: 048
     Dates: start: 20080123
  2. ADVAIR DISKU MIS [Concomitant]
     Dosage: 500/50
     Route: 055
  3. FLONASE [Concomitant]
     Route: 045
  4. ALBUTEROL/SOLIPRATROP [Concomitant]
     Route: 055
  5. DIOVAN [Concomitant]
     Route: 048
  6. PREDNISONE TAB [Concomitant]
     Route: 048
  7. METHOTREXATE [Concomitant]
     Route: 048
  8. ASA FREE [Concomitant]
     Route: 048
  9. CLARITIN [Concomitant]
     Route: 048
  10. IRON [Concomitant]
     Route: 048

REACTIONS (1)
  - DIVERTICULITIS [None]
